FAERS Safety Report 7409676-8 (Version None)
Quarter: 2011Q2

REPORT INFORMATION
  Report Type: 
  Country: None (occurrence: None)
  Receive Date: 20110407
  Receipt Date: 20110407
  Transmission Date: 20111010
  Serious: Yes (Life-Threatening)
  Sender: FDA-Public Use
  Company Number: None

PATIENT
  Age: 27 Year
  Sex: Male

DRUGS (1)
  1. AMBIEN [Suspect]
     Indication: INSOMNIA
     Dosage: 1 PILL BEDTIME PO
     Route: 048
     Dates: start: 20110321, end: 20110403

REACTIONS (3)
  - BALANCE DISORDER [None]
  - DYSARTHRIA [None]
  - ABNORMAL BEHAVIOUR [None]
